FAERS Safety Report 11939849 (Version 1)
Quarter: 2016Q1

REPORT INFORMATION
  Report Type: Spontaneous
  Country: IN (occurrence: IN)
  Receive Date: 20160122
  Receipt Date: 20160122
  Transmission Date: 20160526
  Serious: Yes (Hospitalization)
  Sender: FDA-Public Use
  Company Number: IN-IMPAX LABORATORIES, INC-2016-IPXL-00062

PATIENT
  Age: 10 Year
  Sex: Male

DRUGS (2)
  1. ALBENZA [Suspect]
     Active Substance: ALBENDAZOLE
     Indication: HELMINTHIC INFECTION
     Dosage: 400 MG, 1 /DAY
     Route: 065
  2. IVERMECTIN. [Suspect]
     Active Substance: IVERMECTIN
     Indication: HELMINTHIC INFECTION
     Dosage: 6 MG, 1 /DAY
     Route: 065

REACTIONS (5)
  - Fear [Recovered/Resolved]
  - Suspiciousness [Recovered/Resolved]
  - Insomnia [Recovered/Resolved]
  - Irritability [Recovered/Resolved]
  - Psychotic disorder [Recovered/Resolved]
